FAERS Safety Report 14520450 (Version 1)
Quarter: 2018Q1

REPORT INFORMATION
  Report Type: Report from Study
  Country: None (occurrence: US)
  Receive Date: 20180212
  Receipt Date: 20180212
  Transmission Date: 20180509
  Serious: Yes (Hospitalization, Other)
  Sender: FDA-Public Use
  Company Number: US-AMAG PHARMACEUTICALS, INC.-AMAG201702509

PATIENT

DRUGS (7)
  1. PYRIDOXINE [Concomitant]
     Active Substance: PYRIDOXINE
     Indication: NAUSEA
     Dosage: 25 MG, UNK
     Route: 065
     Dates: start: 20170405, end: 201704
  2. DOXYLAMINE [Concomitant]
     Active Substance: DOXYLAMINE
     Indication: VOMITING
  3. DOXYLAMINE [Concomitant]
     Active Substance: DOXYLAMINE
     Indication: NAUSEA
     Dosage: 25 MG, UNK
     Route: 065
     Dates: start: 20170405, end: 201704
  4. TERCONAZOLE. [Concomitant]
     Active Substance: TERCONAZOLE
     Indication: VULVOVAGINAL MYCOTIC INFECTION
     Dosage: 0.8 %, UNK
     Route: 067
     Dates: start: 20170405, end: 201704
  5. MAKENA [Suspect]
     Active Substance: HYDROXYPROGESTERONE CAPROATE
     Indication: PREMATURE DELIVERY
     Dosage: 250 MG/ML, WEEKLY
     Route: 030
     Dates: start: 20170609, end: 20170615
  6. MAKENA [Suspect]
     Active Substance: HYDROXYPROGESTERONE CAPROATE
     Dosage: 250 MG/ML, WEEKLY
     Route: 030
     Dates: start: 20170623, end: 20170713
  7. PYRIDOXINE [Concomitant]
     Active Substance: PYRIDOXINE
     Indication: VOMITING

REACTIONS (3)
  - Medication error [Unknown]
  - Cervical incompetence [Unknown]
  - Premature delivery [Recovered/Resolved]

NARRATIVE: CASE EVENT DATE: 20170615
